FAERS Safety Report 7792601-8 (Version None)
Quarter: 2011Q4

REPORT INFORMATION
  Report Type: 
  Country: None (occurrence: None)
  Receive Date: 20111003
  Receipt Date: 20110926
  Transmission Date: 20120403
  Serious: Yes (Other)
  Sender: FDA-Public Use
  Company Number: BR-PFIZER INC-2011228768

PATIENT
  Age: 70 Year
  Sex: Female
  Weight: 62 kg

DRUGS (8)
  1. CLONAZEPAM [Concomitant]
     Indication: SLEEP DISORDER
     Dosage: HALF TABLET DAILY
     Dates: start: 20090101
  2. COMBIVENT [Concomitant]
     Indication: ASTHMA
  3. SIMVASTATIN [Concomitant]
     Indication: BLOOD CHOLESTEROL INCREASED
     Dosage: 20 MG, DAILY
     Dates: start: 20090101
  4. VARENICLINE TARTRATE [Suspect]
     Dosage: 1 MG, 2X/DAY
     Route: 048
     Dates: start: 20110901, end: 20110923
  5. COMBIVENT [Concomitant]
     Indication: BRONCHITIS
     Dosage: ONE SPRAY AS NEEDED
     Dates: start: 20060101
  6. ALENIA [Concomitant]
     Indication: ASTHMA
     Dosage: ONE SPRAY AS NEEDED
     Dates: start: 20060101
  7. VARENICLINE TARTRATE [Suspect]
     Indication: SMOKING CESSATION THERAPY
     Dosage: UNK
     Route: 048
     Dates: start: 20110906, end: 20110901
  8. ENALAPRIL [Concomitant]
     Indication: BLOOD PRESSURE INCREASED
     Dosage: HALF TABLET IN THE MORNING
     Dates: start: 20090101

REACTIONS (3)
  - RASH MACULAR [None]
  - RASH PUSTULAR [None]
  - HYPERSENSITIVITY [None]
